FAERS Safety Report 20142052 (Version 1)
Quarter: 2021Q4

REPORT INFORMATION
  Report Type: Spontaneous
  Country: FR (occurrence: FR)
  Receive Date: 20211202
  Receipt Date: 20211202
  Transmission Date: 20220304
  Serious: Yes (Hospitalization, Other)
  Sender: FDA-Public Use
  Company Number: FR-002147023-NVSC2017FR019907

PATIENT
  Age: 4 Year
  Sex: Female

DRUGS (16)
  1. METHOTREXATE [Suspect]
     Active Substance: METHOTREXATE
     Indication: Acute lymphocytic leukaemia
     Dosage: 12 MILLIGRAM, QD (12 MG, QD)
     Route: 037
     Dates: start: 20170608
  2. METHOTREXATE [Suspect]
     Active Substance: METHOTREXATE
     Dosage: 12 MILLIGRAM, QD (12 MG, QD)
     Route: 037
     Dates: start: 20171109, end: 20171109
  3. METHOTREXATE [Suspect]
     Active Substance: METHOTREXATE
     Dosage: 17.5 MILLIGRAM, QD (17.5 MG, QD)
     Route: 048
     Dates: start: 20170803
  4. DOXORUBICIN [Suspect]
     Active Substance: DOXORUBICIN
     Indication: Acute lymphocytic leukaemia
     Dosage: 17.4 MILLIGRAM, QD (17.4 MG, QD)
     Route: 042
     Dates: start: 20171106, end: 20171213
  5. CYTARABINE [Suspect]
     Active Substance: CYTARABINE
     Indication: Acute lymphocytic leukaemia
     Dosage: 50 MILLIGRAM, QD (50 MG, QD)
     Route: 042
     Dates: start: 20171229, end: 20180118
  6. MERCAPTOPURINE [Suspect]
     Active Substance: MERCAPTOPURINE
     Indication: Acute lymphocytic leukaemia
     Dosage: 35 MILLIGRAM, QD (35 MG, QD)
     Route: 048
     Dates: start: 20170727
  7. VINCRISTINE [Suspect]
     Active Substance: VINCRISTINE
     Indication: Acute lymphocytic leukaemia
     Dosage: 1.1 MILLIGRAM, QD (CUMULATIVE DOSE: 14.368 MG)
     Route: 042
     Dates: start: 20171106, end: 20171213
  8. VINCRISTINE [Suspect]
     Active Substance: VINCRISTINE
     Dosage: 1 MILLIGRAM, QD (CUMULATIVE DOSE: 14.368 MG)
     Route: 042
     Dates: start: 20170615
  9. PEGASPARGASE [Suspect]
     Active Substance: PEGASPARGASE
     Indication: Acute lymphocytic leukaemia
     Dosage: UNK
     Route: 065
  10. PEGASPARGASE [Suspect]
     Active Substance: PEGASPARGASE
     Dosage: 900 INTERNATIONAL UNIT, QD (900 IU, QD)
     Route: 042
     Dates: start: 20170619
  11. PEGASPARGASE [Suspect]
     Active Substance: PEGASPARGASE
     Dosage: 1750 INTERNATIONAL UNIT, QD (1750 IU, QD)
     Route: 042
     Dates: start: 20171109, end: 20171109
  12. ADRIAMYCIN [Suspect]
     Active Substance: DOXORUBICIN HYDROCHLORIDE
     Indication: Acute lymphocytic leukaemia
     Dosage: 17.4 MILLIGRAM, QD (17.4 MG, QD)
     Route: 042
     Dates: start: 20171106, end: 20171213
  13. CYCLOPHOSPHAMIDE [Suspect]
     Active Substance: CYCLOPHOSPHAMIDE
     Indication: Acute lymphocytic leukaemia
     Dosage: 650 MILLIGRAM, QD (650 MG, QD)
     Route: 042
     Dates: start: 20171227, end: 20171227
  14. DEXAMETHASONE [Suspect]
     Active Substance: DEXAMETHASONE
     Indication: Acute lymphocytic leukaemia
     Dosage: 4 MILLIGRAM, QD (4 MG, QD)
     Route: 048
     Dates: start: 20170615, end: 20170925
  15. DEXAMETHASONE [Suspect]
     Active Substance: DEXAMETHASONE
     Dosage: 7 MILLIGRAM, QD (CUMULATIVE DOSE: 503 MG)
     Route: 048
     Dates: start: 20171106, end: 20171120
  16. THIOGUANINE ANHYDROUS [Suspect]
     Active Substance: THIOGUANINE ANHYDROUS
     Indication: Acute lymphocytic leukaemia
     Dosage: 40 MILLIGRAM, QD (40 MG, QD)
     Route: 048
     Dates: start: 20171227, end: 20180109

REACTIONS (7)
  - Necrosis [Recovered/Resolved]
  - Febrile bone marrow aplasia [Recovered/Resolved]
  - Perineal necrosis [Recovered/Resolved]
  - Perineal infection [Recovered/Resolved]
  - Off label use [Unknown]
  - Product use in unapproved indication [Unknown]
  - Medication error [Recovered/Resolved]

NARRATIVE: CASE EVENT DATE: 20171106
